FAERS Safety Report 9571224 (Version 1)
Quarter: 2013Q3

REPORT INFORMATION
  Report Type: Spontaneous
  Country: US (occurrence: None)
  Receive Date: 20130927
  Receipt Date: 20130927
  Transmission Date: 20140515
  Serious: No
  Sender: FDA-Public Use
  Company Number: None

PATIENT
  Age: 77 Year
  Sex: Female
  Weight: 66.23 kg

DRUGS (1)
  1. HUMIRA 1 PEN INJECTION [Suspect]
     Indication: RHEUMATOID ARTHRITIS
     Dosage: 1 INJECTION

REACTIONS (3)
  - Confusional state [None]
  - Dizziness [None]
  - Impaired driving ability [None]
